FAERS Safety Report 7979893-7 (Version None)
Quarter: 2011Q4

REPORT INFORMATION
  Report Type: 
  Country: None (occurrence: None)
  Receive Date: 20111214
  Receipt Date: 20111208
  Transmission Date: 20120403
  Serious: Yes (Other)
  Sender: FDA-Public Use
  Company Number: US-ROCHE-793694

PATIENT
  Sex: Male
  Weight: 83.99 kg

DRUGS (1)
  1. ACCUTANE [Suspect]
     Indication: ACNE
     Route: 065
     Dates: start: 19990701, end: 20001217

REACTIONS (6)
  - HEPATIC ENZYME INCREASED [None]
  - INTESTINAL OBSTRUCTION [None]
  - LIP DRY [None]
  - IRRITABLE BOWEL SYNDROME [None]
  - INFLAMMATORY BOWEL DISEASE [None]
  - RHEUMATOID ARTHRITIS [None]
